FAERS Safety Report 7630841-9 (Version None)
Quarter: 2011Q3

REPORT INFORMATION
  Report Type: 
  Country: None (occurrence: None)
  Receive Date: 20110723
  Receipt Date: 20110714
  Transmission Date: 20111222
  Serious: Yes (Hospitalization, Other)
  Sender: FDA-Public Use
  Company Number: US-ABBOTT-11P-163-0839206-00

PATIENT
  Sex: Male
  Weight: 95.34 kg

DRUGS (24)
  1. HUMIRA [Suspect]
     Indication: SYSTEMIC LUPUS ERYTHEMATOSUS
  2. GLUCOSAMINE [Concomitant]
     Indication: ARTHROPATHY
  3. ACIDOPHILUS [Concomitant]
     Indication: PROBIOTIC THERAPY
  4. ASPIRIN [Concomitant]
     Indication: PRODUCT USED FOR UNKNOWN INDICATION
  5. COENZYME Q10 [Concomitant]
     Indication: OXYGEN SATURATION DECREASED
  6. GARLIC [Concomitant]
     Indication: PRODUCT USED FOR UNKNOWN INDICATION
  7. LUTEIN [Concomitant]
     Indication: CATARACT
  8. METOPROLOL TARTRATE [Concomitant]
     Indication: CARDIAC DISORDER
  9. NITROGLYCERIN SPRAY [Concomitant]
     Indication: ANGINA PECTORIS
  10. CALCIUM CITRATE [Concomitant]
     Indication: SUPPLEMENTATION THERAPY
  11. VASOTEC [Concomitant]
     Indication: CARDIAC DISORDER
  12. FUROSEMIDE [Concomitant]
     Indication: CARDIAC FAILURE CONGESTIVE
  13. SALSALATE [Concomitant]
     Indication: RHEUMATOID ARTHRITIS
  14. CATSCLAW [Concomitant]
     Indication: DECREASED IMMUNE RESPONSIVENESS
  15. FISH OIL [Concomitant]
     Indication: SUPPLEMENTATION THERAPY
  16. LUTEIN [Concomitant]
     Indication: PROPHYLAXIS
  17. HUMIRA [Suspect]
     Indication: RHEUMATOID ARTHRITIS
     Dates: start: 20061101, end: 20110701
  18. CEFTIN [Concomitant]
     Indication: PRODUCT USED FOR UNKNOWN INDICATION
     Dates: start: 20110701
  19. AMIODARONE HCL [Concomitant]
     Indication: CARDIAC DISORDER
  20. CIMETIDINE [Concomitant]
     Indication: GASTRIC DISORDER
  21. CIMETIDINE [Concomitant]
     Indication: PROPHYLAXIS
  22. MULTI-VITAMIN [Concomitant]
     Indication: VITAMIN SUPPLEMENTATION
  23. SAW PALMETTO [Concomitant]
     Indication: PROSTATOMEGALY
  24. VITAMIN D [Concomitant]
     Indication: VITAMIN SUPPLEMENTATION

REACTIONS (11)
  - COUGH [None]
  - PULMONARY OEDEMA [None]
  - NASOPHARYNGITIS [None]
  - CARDIAC DISORDER [None]
  - WHEEZING [None]
  - CARDIAC FAILURE CONGESTIVE [None]
  - DIZZINESS [None]
  - PRODUCTIVE COUGH [None]
  - HEART RATE DECREASED [None]
  - MUSCULOSKELETAL PAIN [None]
  - INFLAMMATION [None]
